FAERS Safety Report 11999707 (Version 2)
Quarter: 2016Q1

REPORT INFORMATION
  Report Type: Spontaneous
  Country: US (occurrence: US)
  Receive Date: 20160204
  Receipt Date: 20160308
  Transmission Date: 20160526
  Serious: Yes (Other)
  Sender: FDA-Public Use
  Company Number: US-PAR PHARMACEUTICAL COMPANIES-2016SCPR015136

PATIENT

DRUGS (1)
  1. PIMOZIDE [Suspect]
     Active Substance: PIMOZIDE
     Indication: PRODUCT USED FOR UNKNOWN INDICATION
     Dosage: UNK UNK, UNKNOWN
     Route: 065

REACTIONS (5)
  - Drug ineffective [Unknown]
  - Condition aggravated [Recovered/Resolved]
  - Product substitution issue [Unknown]
  - Product quality issue [Unknown]
  - Psychotic disorder [Recovered/Resolved]
